FAERS Safety Report 4846601-8 (Version None)
Quarter: 2005Q4

REPORT INFORMATION
  Report Type: 
  Country: None (occurrence: None)
  Receive Date: 20051202
  Receipt Date: 20051116
  Transmission Date: 20060501
  Serious: Yes (Hospitalization)
  Sender: FDA-Public Use
  Company Number: 219793

PATIENT
  Age: 50 Year
  Sex: Female

DRUGS (4)
  1. HERCEPTIN [Suspect]
     Indication: BREAST CANCER
     Dosage: SEE IMAGE, INTRAVENOUS
     Route: 042
     Dates: start: 20051014
  2. HERCEPTIN [Suspect]
     Indication: BREAST CANCER
     Dosage: SEE IMAGE, INTRAVENOUS
     Route: 042
     Dates: start: 20051104
  3. ZANTAC [Concomitant]
  4. DEMEROL [Concomitant]

REACTIONS (6)
  - DYSPNOEA [None]
  - HEPATIC FAILURE [None]
  - INFLAMMATORY CARCINOMA OF THE BREAST [None]
  - MYOCARDIAL INFARCTION [None]
  - RENAL FAILURE [None]
  - RETROPERITONEAL HAEMORRHAGE [None]
